FAERS Safety Report 8508023-8 (Version None)
Quarter: 2012Q3

REPORT INFORMATION
  Report Type: 
  Country: None (occurrence: None)
  Receive Date: 20120713
  Receipt Date: 20120704
  Transmission Date: 20120928
  Serious: Yes (Hospitalization, Other)
  Sender: FDA-Public Use
  Company Number: PHHY2010CA75655

PATIENT
  Sex: Male

DRUGS (9)
  1. SANDOSTATIN LAR [Suspect]
     Dosage: 20 MG, QMO
     Route: 030
  2. FRAGMIN [Concomitant]
  3. SANDOSTATIN LAR [Suspect]
     Indication: CARCINOID TUMOUR OF THE PANCREAS
     Dosage: 30 MG, QMO
     Route: 030
     Dates: start: 20101105
  4. SANDOSTATIN LAR [Suspect]
     Dosage: 20 MG, EVERY 4 WEEKS
     Route: 030
  5. SANDOSTATIN LAR [Suspect]
     Dosage: 20 MG, EVERY 4 WEEKS
     Route: 030
  6. LOVENOX [Concomitant]
     Indication: THROMBOSIS
     Dosage: 180 MG, UNK
     Route: 058
  7. APO-CLONIDINE [Concomitant]
     Dosage: 0.1 MG, PRN
  8. SANDOSTATIN LAR [Suspect]
     Dosage: 30 MG ONCE MONTHLY
     Route: 030
     Dates: start: 20110322
  9. SANDOSTATIN LAR [Suspect]
     Dosage: 30 MG, QMO
     Route: 030
     Dates: start: 20120301

REACTIONS (12)
  - METASTASES TO LIVER [None]
  - VOMITING [None]
  - DIARRHOEA [None]
  - ABDOMINAL PAIN UPPER [None]
  - NAUSEA [None]
  - BLOOD PRESSURE INCREASED [None]
  - TREMOR [None]
  - PYREXIA [None]
  - INFECTION [None]
  - THROMBOSIS [None]
  - OEDEMA PERIPHERAL [None]
  - ARTHRALGIA [None]
